FAERS Safety Report 14467302 (Version 1)
Quarter: 2018Q1

REPORT INFORMATION
  Report Type: Spontaneous
  Country: US (occurrence: US)
  Receive Date: 20180131
  Receipt Date: 20180131
  Transmission Date: 20180509
  Serious: Yes (Hospitalization)
  Sender: FDA-Public Use
  Company Number: US-LPDUSPRD-20180094

PATIENT
  Age: 57 Year
  Sex: Male

DRUGS (2)
  1. NICARDIPINE HYDROCHLORIDE INJECTION (0735-10) [Suspect]
     Active Substance: NICARDIPINE HYDROCHLORIDE
     Dosage: UNKNOWN
     Route: 065
  2. ESMOLOL [Concomitant]
     Active Substance: ESMOLOL HYDROCHLORIDE
     Dosage: UNKNOWN
     Route: 065

REACTIONS (5)
  - Respiratory disorder [None]
  - Renal injury [Unknown]
  - Gastrointestinal oedema [Recovering/Resolving]
  - Acute kidney injury [None]
  - Ileus paralytic [Unknown]
